FAERS Safety Report 6162370-6 (Version None)
Quarter: 2009Q2

REPORT INFORMATION
  Report Type: 
  Country: None (occurrence: None)
  Receive Date: 20090421
  Receipt Date: 20090409
  Transmission Date: 20091009
  Serious: Yes (Life-Threatening, Other)
  Sender: FDA-Public Use
  Company Number: US-PFIZER INC-2009176840

PATIENT
  Sex: Male
  Weight: 110.66 kg

DRUGS (1)
  1. NEURONTIN [Suspect]
     Indication: BACK INJURY
     Dosage: UNK
     Dates: start: 20040101

REACTIONS (2)
  - HYPERTENSION [None]
  - MYASTHENIA GRAVIS [None]
